FAERS Safety Report 5938304-3 (Version None)
Quarter: 2008Q4

REPORT INFORMATION
  Report Type: 
  Country: None (occurrence: None)
  Receive Date: 20081102
  Receipt Date: 20081020
  Transmission Date: 20090506
  Serious: Yes (Other)
  Sender: FDA-Public Use
  Company Number: GB-BAUSCH-2008BL004533

PATIENT
  Age: 42 Year
  Sex: Male

DRUGS (11)
  1. PREDNISOLONE [Suspect]
     Indication: CONJUNCTIVITIS
     Dates: start: 20040501
  2. CYCLOSPORINE [Suspect]
     Indication: CONJUNCTIVITIS
     Dates: start: 20060201
  3. CYCLOSPORINE [Suspect]
     Dates: start: 20060401
  4. MYCOPHENOLATE SODIUM [Suspect]
     Indication: CONJUNCTIVITIS
     Dates: start: 20040501
  5. MYCOPHENOLATE SODIUM [Suspect]
     Dates: start: 20060201
  6. AZATHIOPRINE [Suspect]
     Indication: CONJUNCTIVITIS
     Dates: start: 20040301
  7. DAPSONE [Suspect]
     Indication: CONJUNCTIVITIS
     Dates: start: 20040401
  8. DAPSONE [Suspect]
     Dates: start: 20040501
  9. DAPSONE [Suspect]
     Dates: start: 20060201
  10. DAPSONE [Suspect]
     Dates: start: 20060401
  11. CYCLOPHOSPHAMIDE [Suspect]
     Indication: CONJUNCTIVITIS
     Dates: start: 20060401

REACTIONS (5)
  - CORNEAL PERFORATION [None]
  - DRUG INEFFECTIVE [None]
  - KERATITIS BACTERIAL [None]
  - PSEUDOMONAS INFECTION [None]
  - REBOUND EFFECT [None]
